FAERS Safety Report 14244781 (Version 2)
Quarter: 2018Q1

REPORT INFORMATION
  Report Type: Spontaneous
  Country: NO (occurrence: NO)
  Receive Date: 20171201
  Receipt Date: 20180126
  Transmission Date: 20180508
  Serious: Yes (Hospitalization)
  Sender: FDA-Public Use
  Company Number: NO-BIOGEN-2017BI00490875

PATIENT
  Age: 41 Year
  Sex: Female

DRUGS (1)
  1. TYSABRI [Suspect]
     Active Substance: NATALIZUMAB
     Indication: MULTIPLE SCLEROSIS
     Route: 065
     Dates: start: 2007, end: 2015

REACTIONS (6)
  - Neurologic neglect syndrome [Unknown]
  - Multiple sclerosis relapse [Unknown]
  - Rebound effect [Recovered/Resolved]
  - Cognitive disorder [Recovered/Resolved]
  - Mental impairment [Unknown]
  - Hemianopia [Recovered/Resolved]

NARRATIVE: CASE EVENT DATE: 201511
